FAERS Safety Report 18002069 (Version 1)
Quarter: 2020Q3

REPORT INFORMATION
  Report Type: Spontaneous
  Country: US (occurrence: US)
  Receive Date: 20200709
  Receipt Date: 20200709
  Transmission Date: 20201103
  Serious: No
  Sender: FDA-Public Use
  Company Number: US-TEVA-2020-US-1799346

PATIENT
  Age: 70 Year
  Sex: Female

DRUGS (4)
  1. FAMOTIDINE ALEMBIC [Concomitant]
     Route: 065
  2. OMEPRAZOLE MAGNESIUM. [Suspect]
     Active Substance: OMEPRAZOLE MAGNESIUM
     Indication: DYSPEPSIA
     Dosage: 20 MILLIGRAM DAILY; OMEPRAZOLE MAGNESIUM DELAYED RELEASE CAPSULES OTC 20. 6 MG ? DRL 14 CT
     Route: 065
     Dates: end: 20200621
  3. AZITHROMYCIN TEVA [Suspect]
     Active Substance: AZITHROMYCIN
     Route: 065
  4. POLYETHYLENE GLYCOL POWDER [Concomitant]

REACTIONS (3)
  - Swelling [Unknown]
  - Pain [Unknown]
  - Constipation [Unknown]
